FAERS Safety Report 20106087 (Version 1)
Quarter: 2021Q4

REPORT INFORMATION
  Report Type: Report from Study
  Country: CA (occurrence: CA)
  Receive Date: 20211124
  Receipt Date: 20211124
  Transmission Date: 20220303
  Serious: Yes (Hospitalization, Other)
  Sender: FDA-Public Use
  Company Number: CA-JNJFOC-20210924587

PATIENT
  Age: 64 Year
  Sex: Female
  Weight: 90 kg

DRUGS (3)
  1. REMICADE [Suspect]
     Active Substance: INFLIXIMAB
     Indication: Colitis ulcerative
     Dosage: THERAPY END DATE GIVEN AS 20/AUG/2021?RECEIVED INFUSION ON 20/AUG/2021.
     Route: 042
     Dates: start: 20210806
  2. REMICADE [Suspect]
     Active Substance: INFLIXIMAB
     Route: 042
     Dates: start: 202110
  3. REMICADE [Suspect]
     Active Substance: INFLIXIMAB
     Dosage: THE PATIENT RECEIVED 1 DOSE OF REMICADE IN THE HOSPITAL AROUND 20-OCT-2021
     Route: 042
     Dates: start: 2021

REACTIONS (4)
  - Renal failure [Unknown]
  - Colitis ulcerative [Not Recovered/Not Resolved]
  - Clostridium difficile infection [Unknown]
  - Decreased appetite [Unknown]

NARRATIVE: CASE EVENT DATE: 20210101
